FAERS Safety Report 4809985-2 (Version None)
Quarter: 2005Q4

REPORT INFORMATION
  Report Type: 
  Country: None (occurrence: None)
  Receive Date: 20051024
  Receipt Date: 20051011
  Transmission Date: 20060501
  Serious: Yes (Other)
  Sender: FDA-Public Use
  Company Number: 2005140534

PATIENT
  Age: 32 Year
  Sex: Female
  Weight: 45.3597 kg

DRUGS (1)
  1. SINUTAB SINUS NON-DROWSY EXTRA STRENGTH (PARACETAMOL, PSEUDOEPHEDRINE) [Suspect]
     Indication: NASOPHARYNGITIS
     Dosage: ONE CAPLET ONCE, ORAL
     Route: 048
     Dates: start: 20051010, end: 20051010

REACTIONS (9)
  - ASTHENIA [None]
  - BLOOD PRESSURE INCREASED [None]
  - CARDIAC DISORDER [None]
  - CHEST PAIN [None]
  - DIZZINESS [None]
  - FEAR [None]
  - HEART RATE INCREASED [None]
  - INCOHERENT [None]
  - LETHARGY [None]
